FAERS Safety Report 15411871 (Version 1)
Quarter: 2018Q3

REPORT INFORMATION
  Report Type: Spontaneous
  Country: US (occurrence: US)
  Receive Date: 20180921
  Receipt Date: 20180921
  Transmission Date: 20181010
  Serious: No
  Sender: FDA-Public Use
  Company Number: US-RECKITT BENCKISER HEALTHCARE INT LIMITED-RB-88145-2018

PATIENT
  Sex: Female

DRUGS (1)
  1. MUCINEX [Suspect]
     Active Substance: GUAIFENESIN
     Indication: PRODUCT USED FOR UNKNOWN INDICATION
     Dosage: 600 MG, ONE TABLET ON 15?MAR?2018 AT NOON, ONE TABLET AT 2AM ON 16?MAR?2018 AND ACCIDENTALLY ONE TAB
     Route: 065
     Dates: start: 20180315

REACTIONS (1)
  - Inappropriate schedule of drug administration [Unknown]
